FAERS Safety Report 8373639-9 (Version None)
Quarter: 2012Q2

REPORT INFORMATION
  Report Type: 
  Country: None (occurrence: None)
  Receive Date: 20120521
  Receipt Date: 20120510
  Transmission Date: 20120825
  Serious: Yes (Other)
  Sender: FDA-Public Use
  Company Number: US-ASTRAZENECA-2012SE30240

PATIENT
  Age: 79 Year
  Sex: Male
  Weight: 66.2 kg

DRUGS (2)
  1. RHINOCORT [Suspect]
     Indication: MULTIPLE ALLERGIES
     Dosage: TWO SPRAYS IN EACH NOSTRILS EVERY MORNING
     Route: 045
     Dates: start: 20120301
  2. ALLEGRA [Concomitant]

REACTIONS (3)
  - NASAL SEPTUM DEVIATION [None]
  - EPISTAXIS [None]
  - INTENTIONAL DRUG MISUSE [None]
